FAERS Safety Report 25440233 (Version 2)
Quarter: 2025Q2

REPORT INFORMATION
  Report Type: Spontaneous
  Country: JP (occurrence: JP)
  Receive Date: 20250616
  Receipt Date: 20250618
  Transmission Date: 20250716
  Serious: Yes (Death, Life-Threatening, Hospitalization, Other)
  Sender: PFIZER
  Company Number: JP-MLMSERVICE-20250604-PI528919-00165-3

PATIENT
  Age: 8 Decade
  Sex: Male

DRUGS (6)
  1. GEMCITABINE HYDROCHLORIDE [Suspect]
     Active Substance: GEMCITABINE HYDROCHLORIDE
     Indication: Pancreatic carcinoma
  2. PACLITAXEL [Suspect]
     Active Substance: PACLITAXEL
     Indication: Pancreatic carcinoma
  3. LOXOPROFEN [Concomitant]
     Active Substance: LOXOPROFEN
     Indication: Palliative care
  4. OXYCODONE [Concomitant]
     Active Substance: OXYCODONE
     Indication: Palliative care
  5. BETAMETHASONE [Concomitant]
     Active Substance: BETAMETHASONE
     Indication: Palliative care
  6. RABEPRAZOLE [Concomitant]
     Active Substance: RABEPRAZOLE
     Indication: Prophylaxis
     Dosage: 10 MG, 1X/DAY

REACTIONS (8)
  - Liver abscess [Fatal]
  - Proteus infection [Fatal]
  - Streptococcal infection [Fatal]
  - Klebsiella infection [Fatal]
  - Neutropenia [Fatal]
  - Disseminated intravascular coagulation [Fatal]
  - Pancreatic abscess [Fatal]
  - Cellulitis [Fatal]
